FAERS Safety Report 21419775 (Version 1)
Quarter: 2022Q4

REPORT INFORMATION
  Report Type: Spontaneous
  Country: US (occurrence: None)
  Receive Date: 20221005
  Receipt Date: 20221005
  Transmission Date: 20230112
  Serious: Yes (Other)
  Sender: FDA-Public Use
  Company Number: None

PATIENT
  Age: 61 Year
  Sex: Female

DRUGS (27)
  1. OPSUMIT [Suspect]
     Active Substance: MACITENTAN
     Indication: Pulmonary arterial hypertension
     Dosage: FREQUENCY : DAILY;?
     Route: 048
     Dates: start: 20181108
  2. TADALAFIL [Concomitant]
  3. LASIX [Concomitant]
  4. K-TAB [Concomitant]
  5. LOPERAMIDE [Concomitant]
  6. WIXELA INHUB [Concomitant]
  7. WARFARIN [Concomitant]
  8. ZONFRAN [Concomitant]
  9. ALBUTEROL INHL NEB SOLN [Concomitant]
  10. IPRATROPIM INHL SOLN [Concomitant]
  11. TRAMADOL [Concomitant]
  12. FLONASE [Concomitant]
  13. ALPRAZOLAM [Concomitant]
  14. MONTELUKAST [Concomitant]
  15. LEVOTHYROXINE [Concomitant]
  16. DIGOXIN [Concomitant]
  17. LIOTHYRONINE [Concomitant]
  18. ACYCLOVIR [Concomitant]
  19. BISOPROLOL [Concomitant]
  20. SPIRONOLACTONE [Concomitant]
  21. METOLAZONE [Concomitant]
  22. OMEPRAZOLE [Concomitant]
  23. MELOXICAM [Concomitant]
  24. CETIRIZINE [Concomitant]
  25. ASXORBIC ACID [Concomitant]
  26. OXYGEN INTRANASAL [Concomitant]
  27. TYLENOL [Concomitant]

REACTIONS (3)
  - Cellulitis [None]
  - Atrial fibrillation [None]
  - Cardioactive drug level increased [None]

NARRATIVE: CASE EVENT DATE: 20220928
